FAERS Safety Report 12357792 (Version 2)
Quarter: 2016Q2

REPORT INFORMATION
  Report Type: Spontaneous
  Country: IT (occurrence: IT)
  Receive Date: 20160512
  Receipt Date: 20160521
  Transmission Date: 20160815
  Serious: Yes (Hospitalization)
  Sender: FDA-Public Use
  Company Number: IT-SUN PHARMACEUTICAL INDUSTRIES LTD-2016RR-116264

PATIENT
  Age: 14 Year
  Sex: Male
  Weight: 70 kg

DRUGS (2)
  1. OLANZAPINE. [Suspect]
     Active Substance: OLANZAPINE
     Indication: PSYCHOTIC DISORDER
     Dosage: 5 MG DAILY
     Route: 048
  2. CETIRIZINE [Interacting]
     Active Substance: CETIRIZINE HYDROCHLORIDE
     Indication: RHINITIS ALLERGIC
     Dosage: 1 DF DAILY
     Route: 048
     Dates: start: 20160401, end: 20160410

REACTIONS (4)
  - Drug interaction [Recovering/Resolving]
  - Akathisia [Recovering/Resolving]
  - Dystonia [Recovering/Resolving]
  - Excessive eye blinking [Recovering/Resolving]

NARRATIVE: CASE EVENT DATE: 20160413
